FAERS Safety Report 25159286 (Version 1)
Quarter: 2025Q2

REPORT INFORMATION
  Report Type: Spontaneous
  Country: PR (occurrence: PR)
  Receive Date: 20250404
  Receipt Date: 20250404
  Transmission Date: 20250717
  Serious: Yes (Hospitalization, Other)
  Sender: ABBVIE
  Company Number: PR-ABBVIE-6208505

PATIENT
  Age: 66 Year
  Sex: Male

DRUGS (1)
  1. VENCLEXTA [Suspect]
     Active Substance: VENETOCLAX
     Indication: Chronic lymphocytic leukaemia
     Dosage: FORM STRENGTH: 20 MG
     Route: 048

REACTIONS (4)
  - Prostate cancer [Unknown]
  - Hospitalisation [Unknown]
  - Dehydration [Recovered/Resolved]
  - Head and neck cancer [Unknown]

NARRATIVE: CASE EVENT DATE: 20230101
